FAERS Safety Report 4338220-7 (Version None)
Quarter: 2004Q2

REPORT INFORMATION
  Report Type: 
  Country: None (occurrence: None)
  Receive Date: 20040407
  Receipt Date: 20040326
  Transmission Date: 20050107
  Serious: Yes (Life-Threatening)
  Sender: FDA-Public Use
  Company Number: JP-JNJFOC-20031202809

PATIENT
  Age: 73 Year
  Sex: Male

DRUGS (10)
  1. FENTANYL [Suspect]
     Indication: CANCER PAIN
     Dosage: 25 MG, 1 IN 3 DAY, TRANSDERMAL
     Route: 062
     Dates: start: 20020328, end: 20020331
  2. MORPHINE HYDROCHLORIDE (MORPHINE HYDROCHLORIDE) UNKNOWN [Suspect]
     Indication: CANCER PAIN
     Dosage: 10 MG, IN 1 DAY; ORAL
     Route: 048
     Dates: start: 20020328, end: 20020331
  3. LOXOPROFEN SODIUM [Concomitant]
  4. ALL OTHER THERAPEUTIC PRODUCTS [Concomitant]
  5. RANITIDINE HYDROCHLORIDE [Concomitant]
  6. PRAVASTATIN SODIUM [Concomitant]
  7. TRIAZOLAM [Concomitant]
  8. IRINOTECAN HYDROCHLORIDE [Concomitant]
  9. LOPERAMIDE HYDROCHORIDE [Concomitant]
  10. HANGE-SHASHIN-TO (PLANT ALKALOIDS AND OTHER NATURAL PRODUCTS) [Concomitant]

REACTIONS (16)
  - ANAEMIA [None]
  - ANOREXIA [None]
  - BODY TEMPERATURE DECREASED [None]
  - C-REACTIVE PROTEIN INCREASED [None]
  - DISORIENTATION [None]
  - DYSGEUSIA [None]
  - DYSPNOEA [None]
  - FEELING ABNORMAL [None]
  - HYPOKALAEMIA [None]
  - INCONTINENCE [None]
  - MALAISE [None]
  - NAUSEA [None]
  - OXYGEN SATURATION DECREASED [None]
  - SHOCK [None]
  - SOMNOLENCE [None]
  - THIRST [None]
